FAERS Safety Report 16432359 (Version 1)
Quarter: 2019Q2

REPORT INFORMATION
  Report Type: Spontaneous
  Country: US (occurrence: US)
  Receive Date: 20190614
  Receipt Date: 20190614
  Transmission Date: 20190711
  Serious: Yes (Other)
  Sender: FDA-Public Use
  Company Number: US-SA-2019SA156639

PATIENT
  Age: 30 Year
  Sex: Female

DRUGS (2)
  1. DESIPRAMINE [Suspect]
     Active Substance: DESIPRAMINE
     Dosage: UNK UNK, UNK
     Route: 048
  2. ZOLPIDEM TARTRATE. [Suspect]
     Active Substance: ZOLPIDEM TARTRATE
     Dosage: UNK, UNK
     Route: 048

REACTIONS (5)
  - Toxicity to various agents [Recovered/Resolved]
  - Hypotension [Recovered/Resolved]
  - Somnolence [Recovered/Resolved]
  - Electrocardiogram QRS complex prolonged [Recovered/Resolved]
  - Mydriasis [Recovered/Resolved]
